FAERS Safety Report 7351348-2 (Version None)
Quarter: 2011Q1

REPORT INFORMATION
  Report Type: 
  Country: None (occurrence: None)
  Receive Date: 20110314
  Receipt Date: 20110301
  Transmission Date: 20110831
  Serious: Yes (Other)
  Sender: FDA-Public Use
  Company Number: PHHY2011GB17650

PATIENT
  Age: 24 Year
  Sex: Female

DRUGS (5)
  1. CARBAMAZEPINE [Interacting]
     Dosage: 100 MG, UNK
  2. CARBAMAZEPINE [Suspect]
     Indication: CONVULSION
     Dosage: 900 MG, UNK
  3. LEVETIRACETAM [Interacting]
     Indication: EPILEPSY
     Dosage: 3000 MG, UNK
  4. CARBAMAZEPINE [Interacting]
     Dosage: 300 MG, UNK
  5. LACOSAMIDE [Interacting]
     Indication: CONVULSION
     Dosage: 350 MG, QD

REACTIONS (5)
  - NEUROTOXICITY [None]
  - BALANCE DISORDER [None]
  - SOMNOLENCE [None]
  - DRUG INTERACTION [None]
  - DYSARTHRIA [None]
